FAERS Safety Report 6285609-5 (Version None)
Quarter: 2009Q3

REPORT INFORMATION
  Report Type: 
  Country: None (occurrence: None)
  Receive Date: 20090724
  Receipt Date: 20090713
  Transmission Date: 20100115
  Serious: Yes (Hospitalization, Other)
  Sender: FDA-Public Use
  Company Number: ATO-05-0129

PATIENT
  Age: 89 Year
  Sex: Female
  Weight: 91.6266 kg

DRUGS (8)
  1. TRISENOX [Suspect]
     Indication: MYELODYSPLASTIC SYNDROME
     Dosage: Q2WKS; UNIT DOSE: 23 MG; 23 MG; ROUTE; INTRAVENOUS DRIP (23 MG, 1 IN 2 WK) , INTRAVENOUS DRIP
     Route: 041
     Dates: start: 20050215, end: 20050407
  2. THALOMID [Concomitant]
  3. LASIC (FUROSEMIDE) [Concomitant]
  4. ASPIRIN [Concomitant]
  5. POTASSIUM CHLORIDE [Concomitant]
  6. ALOXI [Concomitant]
  7. ARANESP (GARBEPOETIN ALFA) [Concomitant]
  8. OXYCODONE HCL [Concomitant]

REACTIONS (8)
  - CARDIAC FAILURE CONGESTIVE [None]
  - CARDIOACTIVE DRUG LEVEL INCREASED [None]
  - LEFT VENTRICULAR DYSFUNCTION [None]
  - MITRAL VALVE INCOMPETENCE [None]
  - PNEUMONIA VIRAL [None]
  - PNEUMONITIS [None]
  - TACHYCARDIA [None]
  - TRICUSPID VALVE INCOMPETENCE [None]
